FAERS Safety Report 4265961-2 (Version None)
Quarter: 2004Q1

REPORT INFORMATION
  Report Type: 
  Country: None (occurrence: None)
  Receive Date: 20040106
  Receipt Date: 20031223
  Transmission Date: 20041129
  Serious: No
  Sender: FDA-Public Use
  Company Number: 03P-143-0244060-00

PATIENT
  Age: 8 Year
  Sex: Female

DRUGS (1)
  1. VALPROATE SODIUM [Suspect]
     Indication: CONVULSION
     Dosage: SEE IMAGE
     Route: 048

REACTIONS (10)
  - BLOOD PHOSPHORUS DECREASED [None]
  - BLOOD UREA INCREASED [None]
  - CONVULSION [None]
  - HYPOTHERMIA [None]
  - HYPOTHYROIDISM [None]
  - LETHARGY [None]
  - MEAN CELL VOLUME INCREASED [None]
  - OVERDOSE [None]
  - SLEEP APNOEA SYNDROME [None]
  - THROMBOCYTOPENIA [None]
